FAERS Safety Report 16429069 (Version 1)
Quarter: 2019Q2

REPORT INFORMATION
  Report Type: Report from Study
  Country: None (occurrence: US)
  Receive Date: 20190614
  Receipt Date: 20190614
  Transmission Date: 20190711
  Serious: Yes (Other)
  Sender: FDA-Public Use
  Company Number: US-ABBVIE-19K-163-2814291-00

PATIENT
  Sex: Male

DRUGS (1)
  1. HUMIRA [Suspect]
     Active Substance: ADALIMUMAB
     Indication: PRODUCT USED FOR UNKNOWN INDICATION
     Dosage: HUMIRA CITRATE FREE
     Route: 058
     Dates: end: 2019

REACTIONS (5)
  - Abdominal hernia [Unknown]
  - Post procedural diarrhoea [Not Recovered/Not Resolved]
  - Post procedural constipation [Not Recovered/Not Resolved]
  - Device issue [Unknown]
  - Flatulence [Unknown]
